FAERS Safety Report 23754249 (Version 2)
Quarter: 2024Q2

REPORT INFORMATION
  Report Type: Spontaneous
  Country: US (occurrence: US)
  Receive Date: 20240418
  Receipt Date: 20240521
  Transmission Date: 20240716
  Serious: No
  Sender: FDA-Public Use
  Company Number: US-ABBVIE-5719932

PATIENT
  Sex: Male

DRUGS (3)
  1. RINVOQ [Suspect]
     Active Substance: UPADACITINIB
     Indication: Product used for unknown indication
     Route: 048
  2. DUPIXENT [Suspect]
     Active Substance: DUPILUMAB
     Indication: Dermatitis atopic
     Dosage: FREQUENCY :EVERY OTHER HOUR.?STRENGTH: 300 MILLIGRAM/2 MILLILITER
     Route: 058
  3. ADBRY [Suspect]
     Active Substance: TRALOKINUMAB-LDRM
     Indication: Product used for unknown indication
     Dosage: HAD 3 DOSES OF ADBRY SO FAR
     Route: 065

REACTIONS (7)
  - Ocular hyperaemia [Unknown]
  - Liver function test increased [Unknown]
  - Gastrointestinal disorder [Unknown]
  - Conjunctivitis [Unknown]
  - Injection site bruising [Unknown]
  - Drug ineffective [Unknown]
  - Drug ineffective [Unknown]
